FAERS Safety Report 14239799 (Version 2)
Quarter: 2017Q4

REPORT INFORMATION
  Report Type: Spontaneous
  Country: CA (occurrence: CA)
  Receive Date: 20171130
  Receipt Date: 20171214
  Transmission Date: 20180321
  Serious: Yes (Other)
  Sender: FDA-Public Use
  Company Number: CA-PFIZER INC-2017506788

PATIENT
  Age: 59 Year
  Sex: Male
  Weight: 170 kg

DRUGS (8)
  1. METRONIDAZOLE /00012502/ [Concomitant]
     Dosage: UNK
  2. CIPROFLOXACIN /00697202/ [Concomitant]
     Active Substance: CIPROFLOXACIN HYDROCHLORIDE
     Dosage: UNK
  3. TRAMADOL. [Concomitant]
     Active Substance: TRAMADOL
     Dosage: UNK
  4. METHOTREXATE SODIUM. [Suspect]
     Active Substance: METHOTREXATE SODIUM
     Dosage: UNK
  5. LENOLTEC WITH CODEINE NO 1, NO 2, OR NO 3 [Concomitant]
     Dosage: UNK
  6. HYDROMORPHONE /00080902/ [Concomitant]
     Dosage: UNK
  7. TYLENOL [Concomitant]
     Active Substance: ACETAMINOPHEN
     Dosage: UNK
  8. FOLIC ACID. [Concomitant]
     Active Substance: FOLIC ACID
     Dosage: UNK

REACTIONS (8)
  - Fluctuance [Unknown]
  - Fistula discharge [Unknown]
  - Inflammation [Unknown]
  - Proctalgia [Not Recovered/Not Resolved]
  - Ileal ulcer [Unknown]
  - Induration [Unknown]
  - Haematochezia [Unknown]
  - Anal fistula [Unknown]
